FAERS Safety Report 9404632 (Version 1)
Quarter: 2013Q3

REPORT INFORMATION
  Report Type: Spontaneous
  Country: DE (occurrence: DE)
  Receive Date: 20130717
  Receipt Date: 20130717
  Transmission Date: 20140515
  Serious: Yes (Other)
  Sender: FDA-Public Use
  Company Number: PHHY2013DE074289

PATIENT
  Sex: Female

DRUGS (3)
  1. ALLOPURINOL [Suspect]
  2. HYDROCHLOROTHIAZIDE [Suspect]
     Indication: HYPERTENSION
  3. VALSARTAN [Suspect]
     Indication: HYPERTENSION

REACTIONS (3)
  - Abortion spontaneous [Unknown]
  - Amniotic cavity infection [Unknown]
  - Maternal exposure during pregnancy [Unknown]
